FAERS Safety Report 15130429 (Version 1)
Quarter: 2018Q3

REPORT INFORMATION
  Report Type: Spontaneous
  Country: US (occurrence: US)
  Receive Date: 20180615
  Receipt Date: 20180615
  Transmission Date: 20181010
  Serious: Yes (Other)
  Sender: FDA-Public Use
  Company Number: None

PATIENT
  Age: 48 Year
  Sex: Female
  Weight: 87.6 kg

DRUGS (1)
  1. REMICADE [Suspect]
     Active Substance: INFLIXIMAB
     Indication: SARCOIDOSIS
     Route: 041
     Dates: start: 20180507, end: 20180507

REACTIONS (3)
  - Erythema [None]
  - Infusion related reaction [None]
  - Dyspnoea [None]

NARRATIVE: CASE EVENT DATE: 20180507
